FAERS Safety Report 8915180 (Version 1)
Quarter: 2012Q4

REPORT INFORMATION
  Report Type: 
  Country: US (occurrence: US)
  Receive Date: 20121116
  Receipt Date: 20121116
  Transmission Date: 20130627
  Serious: No
  Sender: FDA-Public Use
  Company Number: US-009507513-1211USA006016

PATIENT
  Age: 60 Year
  Sex: Male

DRUGS (1)
  1. JANUVIA [Suspect]
     Indication: DIABETES MELLITUS
     Dosage: 25 mg, qd
     Route: 048
     Dates: end: 20121023

REACTIONS (2)
  - Rash [Recovered/Resolved]
  - Skin exfoliation [Recovered/Resolved]
